FAERS Safety Report 11812270 (Version 2)
Quarter: 2016Q2

REPORT INFORMATION
  Report Type: Spontaneous
  Country: DK (occurrence: DK)
  Receive Date: 20151208
  Receipt Date: 20160629
  Transmission Date: 20160815
  Serious: Yes (Hospitalization, Disabling)
  Sender: FDA-Public Use
  Company Number: PHHY2015DK157156

PATIENT
  Age: 27 Year
  Sex: Female

DRUGS (1)
  1. MALONETTA [Suspect]
     Active Substance: ETHINYL ESTRADIOL\LEVONORGESTREL
     Indication: MENSTRUATION IRREGULAR
     Route: 048
     Dates: start: 20140522, end: 20140612

REACTIONS (15)
  - Depressed level of consciousness [Recovered/Resolved]
  - Headache [Not Recovered/Not Resolved]
  - Back pain [Unknown]
  - Restless legs syndrome [Unknown]
  - Head discomfort [Unknown]
  - Dizziness [Recovered/Resolved]
  - Cerebral infarction [Not Recovered/Not Resolved]
  - Fatigue [Not Recovered/Not Resolved]
  - Nausea [Recovered/Resolved]
  - Epistaxis [Recovered/Resolved]
  - Memory impairment [Not Recovered/Not Resolved]
  - Intracranial venous sinus thrombosis [Recovered/Resolved with Sequelae]
  - Vomiting [Recovered/Resolved]
  - Ear pain [Unknown]
  - Muscular weakness [Not Recovered/Not Resolved]

NARRATIVE: CASE EVENT DATE: 201406
